FAERS Safety Report 12212035 (Version 1)
Quarter: 2016Q1

REPORT INFORMATION
  Report Type: Spontaneous
  Country: FR (occurrence: FR)
  Receive Date: 20160325
  Receipt Date: 20160325
  Transmission Date: 20160526
  Serious: Yes (Hospitalization)
  Sender: FDA-Public Use
  Company Number: FR-SA-2016SA058857

PATIENT
  Age: 80 Year
  Sex: Male

DRUGS (14)
  1. MOVICOL [Concomitant]
     Active Substance: POLYETHYLENE GLYCOL 3350\POTASSIUM CHLORIDE\SODIUM BICARBONATE\SODIUM CHLORIDE
     Route: 065
     Dates: start: 20160213
  2. LASILIX [Concomitant]
     Active Substance: FUROSEMIDE
     Route: 065
  3. TAHOR [Concomitant]
     Active Substance: ATORVASTATIN CALCIUM
     Route: 065
     Dates: start: 20160216
  4. HEMIGOXINE [Concomitant]
     Active Substance: DIGOXIN
     Route: 065
  5. IMOVANE [Concomitant]
     Active Substance: ZOPICLONE
     Route: 065
  6. KARDEGIC [Suspect]
     Active Substance: ASPIRIN LYSINE
     Indication: ATRIAL FIBRILLATION
     Route: 048
     Dates: start: 20160226, end: 20160301
  7. HALDOL [Concomitant]
     Active Substance: HALOPERIDOL
     Dosage: DOSE : ONE INJECTION
     Route: 065
     Dates: start: 20160213
  8. TAHOR [Concomitant]
     Active Substance: ATORVASTATIN CALCIUM
     Route: 065
  9. LOVENOX [Suspect]
     Active Substance: ENOXAPARIN SODIUM
     Indication: ATRIAL FIBRILLATION
     Route: 065
     Dates: start: 20160227, end: 20160229
  10. BISOPROLOL [Concomitant]
     Active Substance: BISOPROLOL
     Route: 065
  11. PREVISCAN [Concomitant]
     Active Substance: FLUINDIONE
     Route: 065
     Dates: end: 20160224
  12. DIFFU K [Concomitant]
     Active Substance: POTASSIUM CHLORIDE
     Route: 065
  13. NORSET [Concomitant]
     Active Substance: MIRTAZAPINE
     Route: 065
  14. GAVISCON [Concomitant]
     Active Substance: ALUMINUM HYDROXIDE\MAGNESIUM CARBONATE
     Route: 065

REACTIONS (1)
  - Toxic skin eruption [Recovered/Resolved]

NARRATIVE: CASE EVENT DATE: 20160229
